FAERS Safety Report 14200030 (Version 4)
Quarter: 2019Q2

REPORT INFORMATION
  Report Type: Spontaneous
  Country: CA (occurrence: CA)
  Receive Date: 20171117
  Receipt Date: 20190403
  Transmission Date: 20190711
  Serious: Yes (Hospitalization)
  Sender: FDA-Public Use
  Company Number: CA-PFIZER INC-2017357069

PATIENT
  Age: 55 Year
  Sex: Female
  Weight: 72.6 kg

DRUGS (3)
  1. SUTENT [Suspect]
     Active Substance: SUNITINIB MALATE
     Indication: METASTATIC RENAL CELL CARCINOMA
     Dosage: 50 MG FOR TWO MONTHS
     Route: 048
     Dates: start: 20170524
  2. SUTENT [Suspect]
     Active Substance: SUNITINIB MALATE
     Dosage: 25 MG, DAILY
     Route: 048
     Dates: start: 20190325
  3. SUTENT [Suspect]
     Active Substance: SUNITINIB MALATE
     Dosage: 25MG CYCLIC (DAILY, TWO WEEKS ON, 1 WEEK OFF)
     Route: 048

REACTIONS (2)
  - Malaise [Unknown]
  - Weight decreased [Unknown]
